FAERS Safety Report 12005721 (Version 2)
Quarter: 2016Q1

REPORT INFORMATION
  Report Type: Spontaneous
  Country: US (occurrence: US)
  Receive Date: 20160204
  Receipt Date: 20160316
  Transmission Date: 20160526
  Serious: Yes (Other)
  Sender: FDA-Public Use
  Company Number: US-TEVA-631696USA

PATIENT
  Age: 54 Year
  Sex: Female

DRUGS (1)
  1. ZECUITY [Suspect]
     Active Substance: SUMATRIPTAN SUCCINATE
     Dosage: 6.5 MG / 4 HOURS
     Route: 062
     Dates: start: 20160124, end: 20160124

REACTIONS (8)
  - Application site discolouration [Unknown]
  - Application site urticaria [Unknown]
  - Application site burn [Recovered/Resolved]
  - Application site pain [Unknown]
  - Device leakage [Unknown]
  - Blood blister [Unknown]
  - Application site vesicles [Unknown]
  - Drug ineffective [Unknown]

NARRATIVE: CASE EVENT DATE: 20160124
